FAERS Safety Report 6895657-X (Version None)
Quarter: 2010Q3

REPORT INFORMATION
  Report Type: 
  Country: None (occurrence: None)
  Receive Date: 20100730
  Receipt Date: 20100730
  Transmission Date: 20110219
  Serious: No
  Sender: FDA-Public Use
  Company Number: None

PATIENT
  Age: 68 Year
  Sex: Male

DRUGS (1)
  1. TAMSULOSIN HCL [Suspect]

REACTIONS (4)
  - DRUG EFFECT DECREASED [None]
  - DYSURIA [None]
  - NOCTURIA [None]
  - PRODUCT SUBSTITUTION ISSUE [None]
